FAERS Safety Report 11138731 (Version 3)
Quarter: 2015Q2

REPORT INFORMATION
  Report Type: Spontaneous
  Country: US (occurrence: US)
  Receive Date: 20150527
  Receipt Date: 20150623
  Transmission Date: 20150821
  Serious: Yes (Other)
  Sender: FDA-Public Use
  Company Number: US-JNJCP-30000274883

PATIENT
  Sex: Male
  Weight: 88 kg

DRUGS (5)
  1. CLOMID (PILL) [Concomitant]
     Dosage: 25MG PER DAY, SINCE FIVE MONTHS
  2. VITAMIN B12 [Concomitant]
     Active Substance: CYANOCOBALAMIN
     Indication: ROUTINE HEALTH MAINTENANCE
     Dosage: 1,000 MG PER DAY, SINCE SIX MONTHS
  3. NEUTROGENA PRODUCTS [Suspect]
     Active Substance: UNSPECIFIED INGREDIENT
     Indication: PROPHYLAXIS
     Dosage: AT LEAST AN OUNCE TWO TO THREE TIMEA A DAY
     Route: 061
     Dates: start: 20150315, end: 20150316
  4. AVEENO BABY CONTINUOUS PROTECTION SUNSCREEN BROAD SPECTRUM SPF55 [Suspect]
     Active Substance: AVOBENZONE\HOMOSALATE\OCTISALATE\OCTOCRYLENE\OXYBENZONE
     Indication: PROPHYLAXIS
     Dosage: ABOUT AN OUNCE, TWO TO THREE TIMES A DAY
     Route: 061
     Dates: start: 20150317, end: 20150320
  5. MULTI-VITAMIN [Concomitant]
     Active Substance: .ALPHA.-TOCOPHEROL ACETATE, DL-\ASCORBIC ACID\CYANOCOBALAMIN\FLUORIDE ION\FOLIC ACID\NIACIN\PYRIDOXINE\RIBOFLAVIN\THIAMINE\VITAMIN A\VITAMIN D
     Indication: ROUTINE HEALTH MAINTENANCE
     Dosage: ONCE A DAY

REACTIONS (3)
  - Application site erythema [Recovered/Resolved]
  - Application site papules [Recovered/Resolved]
  - Hypersensitivity vasculitis [Recovered/Resolved]

NARRATIVE: CASE EVENT DATE: 20150316
